FAERS Safety Report 22070493 (Version 1)
Quarter: 2023Q1

REPORT INFORMATION
  Report Type: Other
  Country: None (occurrence: US)
  Receive Date: 20230307
  Receipt Date: 20230307
  Transmission Date: 20230418
  Serious: No
  Sender: FDA-Public Use
  Company Number: US-Nova Laboratories Limited-2138784

PATIENT
  Age: 71 Year
  Sex: Female

DRUGS (1)
  1. PURIXAN [Suspect]
     Active Substance: MERCAPTOPURINE
     Indication: Crohn^s disease

REACTIONS (2)
  - Adverse drug reaction [Unknown]
  - Off label use [None]
